FAERS Safety Report 6260475-2 (Version None)
Quarter: 2009Q3

REPORT INFORMATION
  Report Type: 
  Country: None (occurrence: None)
  Receive Date: 20090706
  Receipt Date: 20090626
  Transmission Date: 20100115
  Serious: Yes (Hospitalization)
  Sender: FDA-Public Use
  Company Number: 2009SP012332

PATIENT
  Age: 41 Year
  Sex: Male
  Weight: 66 kg

DRUGS (3)
  1. PEG-INTRON [Suspect]
     Indication: HEPATITIS C
     Dosage: 80 MCG; QW; SC
     Route: 058
     Dates: start: 20070924, end: 20080223
  2. RIBAVIRIN [Suspect]
     Indication: HEPATITIS C
     Dosage: 125 GM; QD; PO
     Route: 048
     Dates: start: 20070924, end: 20080223
  3. PROPRANOLOL [Suspect]
     Indication: PORTAL HYPERTENSION
     Dosage: 20 MG; BID; PO
     Route: 048
     Dates: start: 20060911

REACTIONS (7)
  - BLOOD UREA INCREASED [None]
  - DEHYDRATION [None]
  - DIABETIC KETOACIDOSIS [None]
  - HAEMOGLOBIN DECREASED [None]
  - HYPOVOLAEMIC SHOCK [None]
  - PLATELET COUNT DECREASED [None]
  - WHITE BLOOD CELL COUNT DECREASED [None]
